FAERS Safety Report 11585718 (Version 1)
Quarter: 2015Q3

REPORT INFORMATION
  Report Type: Spontaneous
  Country: US (occurrence: US)
  Receive Date: 20150916
  Receipt Date: 20150916
  Transmission Date: 20151125
  Serious: No
  Sender: FDA-Public Use
  Company Number: US-ELI_LILLY_AND_COMPANY-US200803006920

PATIENT
  Age: 80 Year
  Sex: Female

DRUGS (3)
  1. FORTEO [Suspect]
     Active Substance: TERIPARATIDE
     Indication: CALCIUM DEFICIENCY
     Dates: start: 200504
  2. CALCIUM WITH VITAMIN D /00944201/ [Concomitant]
     Active Substance: CALCIUM\VITAMIN D
  3. THYROID THERAPY [Concomitant]
     Active Substance: UNSPECIFIED INGREDIENT
     Dosage: UNK, DAILY (1/D)

REACTIONS (5)
  - Abdominal discomfort [Recovered/Resolved]
  - Influenza like illness [Recovered/Resolved]
  - Malaise [Recovered/Resolved]
  - Fatigue [Unknown]
  - Stress [Unknown]

NARRATIVE: CASE EVENT DATE: 200710
